FAERS Safety Report 10213659 (Version 1)
Quarter: 2014Q2

REPORT INFORMATION
  Report Type: Spontaneous
  Country: KR (occurrence: None)
  Receive Date: 20140530
  Receipt Date: 20140530
  Transmission Date: 20141212
  Serious: Yes (Death, Other)
  Sender: FDA-Public Use
  Company Number: SYM-2014-21496

PATIENT
  Age: 59 Year
  Sex: Male

DRUGS (5)
  1. 5 FLUOROURACIL (FLUOROURACIL) (FLUOROURACIL) [Suspect]
     Indication: COLON CANCER
  2. ELOXATIN (OXALIPLATIN) (OXALIPLATIN) [Suspect]
     Indication: COLON CANCER
  3. LEUCOVORIN (FOLINIC ACID) (FOLINIC ACID) [Suspect]
     Indication: COLON CANCER
  4. IRINOTECAN (IRINOTECAN) [Concomitant]
  5. BEVACIZUMAB (BEVACIZUMAB) [Concomitant]

REACTIONS (5)
  - Tumour lysis syndrome [None]
  - Hyperbilirubinaemia [None]
  - Performance status decreased [None]
  - Febrile neutropenia [None]
  - Septic shock [None]
